FAERS Safety Report 20604648 (Version 1)
Quarter: 2022Q1

REPORT INFORMATION
  Report Type: Spontaneous
  Country: US (occurrence: US)
  Receive Date: 20220316
  Receipt Date: 20220316
  Transmission Date: 20220423
  Serious: Yes (Death, Hospitalization, Other)
  Sender: FDA-Public Use
  Company Number: US-ALVOGEN-2022-ALVOGEN-118625

PATIENT
  Age: 56 Year
  Sex: Female

DRUGS (3)
  1. HYDROCODONE BITARTRATE AND ACETAMINOPHEN [Suspect]
     Active Substance: ACETAMINOPHEN\HYDROCODONE BITARTRATE
     Indication: Suicide attempt
  2. OXYCODONE [Suspect]
     Active Substance: OXYCODONE
     Indication: Suicide attempt
  3. ALCOHOL [Suspect]
     Active Substance: ALCOHOL
     Indication: Suicide attempt

REACTIONS (1)
  - Completed suicide [Fatal]
